FAERS Safety Report 5710811-8 (Version None)
Quarter: 2008Q2

REPORT INFORMATION
  Report Type: 
  Country: None (occurrence: None)
  Receive Date: 20080417
  Receipt Date: 20080417
  Transmission Date: 20081010
  Serious: Yes (Life-Threatening)
  Sender: FDA-Public Use
  Company Number: None

PATIENT
  Age: 57 Year
  Sex: Female
  Weight: 77.1115 kg

DRUGS (3)
  1. NIASPAN [Suspect]
     Indication: LOW DENSITY LIPOPROTEIN INCREASED
     Dosage: 500 MG 1 @ BEDTIME MOUTH
     Route: 048
     Dates: start: 20080402
  2. NIASPAN [Suspect]
     Indication: LOW DENSITY LIPOPROTEIN INCREASED
     Dosage: 500 MG 1 @ BEDTIME MOUTH
     Route: 048
     Dates: start: 20080403
  3. NIASPAN [Suspect]

REACTIONS (8)
  - BACK PAIN [None]
  - DISORIENTATION [None]
  - FALL [None]
  - FEELING HOT [None]
  - HEADACHE [None]
  - MUSCULOSKELETAL PAIN [None]
  - NECK PAIN [None]
  - SYNCOPE VASOVAGAL [None]
